APPROVED DRUG PRODUCT: ESTRADIOL
Active Ingredient: ESTRADIOL
Strength: 1MG
Dosage Form/Route: TABLET;ORAL
Application: A040275 | Product #002 | TE Code: AB
Applicant: EPIC PHARMA LLC
Approved: Dec 29, 1998 | RLD: No | RS: No | Type: RX